FAERS Safety Report 6953241-3 (Version None)
Quarter: 2010Q3

REPORT INFORMATION
  Report Type: 
  Country: None (occurrence: None)
  Receive Date: 20100829
  Receipt Date: 20100629
  Transmission Date: 20110219
  Serious: No
  Sender: FDA-Public Use
  Company Number: US-ABBOTT-10P-163-0649504-00

PATIENT
  Sex: Male
  Weight: 72.64 kg

DRUGS (11)
  1. NIASPAN [Suspect]
     Indication: BLOOD CHOLESTEROL INCREASED
     Route: 048
     Dates: start: 20100602
  2. NOVOLOG [Concomitant]
     Indication: DIABETES MELLITUS
     Dosage: PM
     Route: 058
  3. LEVAMIR [Concomitant]
     Indication: DIABETES MELLITUS
     Dosage: PM
     Route: 058
  4. PLAVIX [Concomitant]
     Indication: STENT PLACEMENT
     Route: 048
     Dates: start: 20100101
  5. ASACOL [Concomitant]
     Indication: GASTROINTESTINAL DISORDER
     Route: 048
     Dates: start: 20050101
  6. ARICEPT [Concomitant]
     Indication: PRODUCT USED FOR UNKNOWN INDICATION
     Dosage: 1/2 DAILY
     Route: 048
  7. LIPITOR [Concomitant]
     Indication: BLOOD CHOLESTEROL INCREASED
     Route: 048
  8. FLOMAX [Concomitant]
     Indication: PRODUCT USED FOR UNKNOWN INDICATION
     Route: 048
  9. COSOPT [Concomitant]
     Indication: EYE DISORDER
     Route: 047
  10. GLYBURIDE [Concomitant]
     Indication: DIABETES MELLITUS
     Route: 048
  11. EXFORGE [Concomitant]
     Indication: HYPERTENSION
     Dosage: 5/160 DAILY
     Route: 048
     Dates: start: 20100601

REACTIONS (1)
  - PARAESTHESIA [None]
